FAERS Safety Report 4469476-8 (Version None)
Quarter: 2004Q4

REPORT INFORMATION
  Report Type: 
  Country: None (occurrence: None)
  Receive Date: 20041008
  Receipt Date: 20040929
  Transmission Date: 20050328
  Serious: Yes (Death)
  Sender: FDA-Public Use
  Company Number: FR-JNJFOC-20040909788

PATIENT
  Sex: Female

DRUGS (4)
  1. RISPERDAL [Suspect]
     Indication: AUTISM
     Route: 049
  2. TERCIAN [Suspect]
     Route: 049
  3. TERCIAN [Suspect]
     Indication: AUTISM
     Route: 049
  4. LYSANXIA [Concomitant]

REACTIONS (7)
  - COLONIC PSEUDO-OBSTRUCTION [None]
  - DRUG INTERACTION [None]
  - GASTROINTESTINAL NECROSIS [None]
  - MEGACOLON ACQUIRED [None]
  - OXYGEN SATURATION DECREASED [None]
  - SEPTIC SHOCK [None]
  - VOLVULUS OF BOWEL [None]
